FAERS Safety Report 10169764 (Version 4)
Quarter: 2015Q1

REPORT INFORMATION
  Report Type: Report from Study
  Country: US (occurrence: US)
  Receive Date: 20140513
  Receipt Date: 20150112
  Transmission Date: 20150720
  Serious: Yes (Hospitalization, Other)
  Sender: FDA-Public Use
  Company Number: US-ACTELION-A-NJ2014-98717

PATIENT
  Age: 64 Year
  Sex: Male

DRUGS (6)
  1. TRACLEER [Suspect]
     Active Substance: BOSENTAN\BOSENTAN MONOHYDRATE
     Indication: PULMONARY ARTERIAL HYPERTENSION
     Dosage: UNK
     Route: 048
  2. ASPIRIN. [Concomitant]
     Active Substance: ASPIRIN
  3. SILDENAFIL. [Concomitant]
     Active Substance: SILDENAFIL
  4. TRAMADOL [Suspect]
     Active Substance: TRAMADOL
     Indication: PRODUCT USED FOR UNKNOWN INDICATION
     Route: 065
  5. PLAVIX [Concomitant]
     Active Substance: CLOPIDOGREL BISULFATE
  6. OXYGEN. [Concomitant]
     Active Substance: OXYGEN

REACTIONS (4)
  - Seizure [Unknown]
  - Syncope [Unknown]
  - Bone cancer [Unknown]
  - Pneumonia [Unknown]

NARRATIVE: CASE EVENT DATE: 20141028
